FAERS Safety Report 7914458-4 (Version None)
Quarter: 2011Q4

REPORT INFORMATION
  Report Type: 
  Country: None (occurrence: None)
  Receive Date: 20111110
  Receipt Date: 20111031
  Transmission Date: 20120403
  Serious: Yes (Death)
  Sender: FDA-Public Use
  Company Number: 2011MA016018

PATIENT
  Age: 72 Year
  Sex: Female

DRUGS (11)
  1. MIRTAZAPINE [Suspect]
     Indication: SCHIZOAFFECTIVE DISORDER
     Dosage: 30 MG;QD;PO
     Route: 048
     Dates: end: 20111023
  2. MIRTAZAPINE [Suspect]
     Indication: SCHIZOAFFECTIVE DISORDER
     Dosage: 30 MG;QD;PO
     Route: 048
     Dates: end: 20111023
  3. ZELDOX (NO PREF. NAME) [Suspect]
     Indication: SCHIZOAFFECTIVE DISORDER
     Dosage: 40 MG;BID;PO
     Route: 048
     Dates: end: 20111023
  4. LITHIUM CITRATE [Suspect]
     Indication: SCHIZOAFFECTIVE DISORDER
     Dosage: 6 MMOL;PO
     Route: 048
     Dates: end: 20111023
  5. CENTYL MED KALIUMKLORID [Concomitant]
  6. FRAGMIN [Concomitant]
  7. FERRO DURETTER [Concomitant]
  8. ESCITALOPRAM OXALATE [Suspect]
     Indication: SCHIZOAFFECTIVE DISORDER
     Dosage: 30 MG;QD;PO
     Route: 048
     Dates: end: 20111023
  9. FUROSEMIDE [Concomitant]
  10. AMLODIPINE [Concomitant]
  11. ALPRAZOLAM [Concomitant]

REACTIONS (9)
  - LACTIC ACIDOSIS [None]
  - RENAL FAILURE [None]
  - DYSPNOEA [None]
  - HUMERUS FRACTURE [None]
  - OSTEOSYNTHESIS [None]
  - ORGAN FAILURE [None]
  - RHABDOMYOLYSIS [None]
  - FALL [None]
  - NEUROLEPTIC MALIGNANT SYNDROME [None]
